FAERS Safety Report 18600765 (Version 1)
Quarter: 2020Q4

REPORT INFORMATION
  Report Type: Spontaneous
  Country: SE (occurrence: SE)
  Receive Date: 20201210
  Receipt Date: 20201210
  Transmission Date: 20210114
  Serious: Yes (Other)
  Sender: FDA-Public Use
  Company Number: SE-TEVA-2020-SE-1854367

PATIENT
  Sex: Female

DRUGS (1)
  1. BETOLVEX [CYANOCOBALAMIN] [Suspect]
     Active Substance: CYANOCOBALAMIN
     Dosage: 1X1
     Route: 048

REACTIONS (3)
  - Foreign body in throat [Unknown]
  - Product use complaint [Unknown]
  - Product substitution issue [Unknown]
